FAERS Safety Report 21863872 (Version 2)
Quarter: 2023Q1

REPORT INFORMATION
  Report Type: Report from Study
  Country: US (occurrence: US)
  Receive Date: 20230116
  Receipt Date: 20230212
  Transmission Date: 20230418
  Serious: Yes (Other)
  Sender: FDA-Public Use
  Company Number: US-ABBVIE-4262538

PATIENT
  Sex: Female

DRUGS (3)
  1. HUMIRA [Suspect]
     Active Substance: ADALIMUMAB
     Indication: Ankylosing spondylitis
     Route: 058
  2. HUMIRA [Suspect]
     Active Substance: ADALIMUMAB
     Indication: Rheumatoid arthritis
  3. HUMIRA [Suspect]
     Active Substance: ADALIMUMAB
     Indication: Colitis ulcerative

REACTIONS (9)
  - Soft tissue excision [Unknown]
  - Skin laceration [Unknown]
  - Device issue [Unknown]
  - Wound haemorrhage [Unknown]
  - Injection site haemorrhage [Unknown]
  - Illness [Unknown]
  - Injection site papule [Unknown]
  - Limb injury [Unknown]
  - Wound complication [Unknown]
